FAERS Safety Report 5165231-4 (Version None)
Quarter: 2006Q4

REPORT INFORMATION
  Report Type: 
  Country: None (occurrence: None)
  Receive Date: 20061205
  Receipt Date: 20061130
  Transmission Date: 20070319
  Serious: Yes (Hospitalization)
  Sender: FDA-Public Use
  Company Number: US-JNJFOC-20061200690

PATIENT
  Sex: Male
  Weight: 101.61 kg

DRUGS (3)
  1. REMICADE [Suspect]
     Indication: RHEUMATOID ARTHRITIS
     Dosage: DOSAGE RECEIVED: 3 VIALS
     Route: 042
  2. SULFASALAZINE [Concomitant]
     Indication: RHEUMATOID ARTHRITIS
     Dosage: DURATION: 6 MONTHS PLUS
  3. METHOTREXATE [Concomitant]
     Indication: RHEUMATOID ARTHRITIS
     Dosage: DURATION: 6 MONTHS PLUS

REACTIONS (2)
  - DIABETES MELLITUS [None]
  - HOSPITALISATION [None]
